FAERS Safety Report 9568782 (Version 2)
Quarter: 2013Q3

REPORT INFORMATION
  Report Type: Spontaneous
  Country: US (occurrence: US)
  Receive Date: 20130930
  Receipt Date: 20130930
  Transmission Date: 20140515
  Serious: No
  Sender: FDA-Public Use
  Company Number: US-AMGEN-USASP2013050465

PATIENT
  Age: 21 Year
  Sex: Female

DRUGS (1)
  1. ENBREL [Suspect]
     Indication: GUTTATE PSORIASIS
     Dosage: 50 MG, QWK
     Route: 065
     Dates: start: 20130415

REACTIONS (1)
  - Psoriasis [Not Recovered/Not Resolved]
